FAERS Safety Report 9322609 (Version 1)
Quarter: 2013Q2

REPORT INFORMATION
  Report Type: Spontaneous
  Country: US (occurrence: US)
  Receive Date: 20130531
  Receipt Date: 20130531
  Transmission Date: 20140414
  Serious: No
  Sender: FDA-Public Use
  Company Number: US-ASTRAZENECA-2013SE33798

PATIENT
  Age: 27734 Day
  Sex: Male
  Weight: 82.6 kg

DRUGS (6)
  1. METOPROLOL SUCCINATE [Suspect]
     Route: 048
  2. OMEPRAZOLE [Suspect]
     Route: 048
     Dates: start: 20130101
  3. BRILINTA [Suspect]
     Indication: STENT PLACEMENT
     Route: 048
     Dates: start: 20130115
  4. LIPITOR [Concomitant]
  5. CYPRINATE [Concomitant]
     Route: 050
     Dates: start: 1999
  6. ASPIRIN [Concomitant]

REACTIONS (7)
  - Back pain [Not Recovered/Not Resolved]
  - Erection increased [Unknown]
  - Blood urine present [Recovering/Resolving]
  - Haemorrhage [Unknown]
  - Dyspnoea [Not Recovered/Not Resolved]
  - Fatigue [Not Recovered/Not Resolved]
  - Intentional drug misuse [Unknown]
